FAERS Safety Report 5497973-5 (Version None)
Quarter: 2007Q4

REPORT INFORMATION
  Report Type: 
  Country: None (occurrence: None)
  Receive Date: 20071025
  Receipt Date: 20071016
  Transmission Date: 20080405
  Serious: Yes (Other)
  Sender: FDA-Public Use
  Company Number: DE-ASTRAZENECA-2007PK02156

PATIENT

DRUGS (1)
  1. BUPIVACAINE HCL [Suspect]
     Indication: ANAESTHESIA
     Route: 053

REACTIONS (1)
  - NEUROMUSCULAR BLOCK PROLONGED [None]
